FAERS Safety Report 5088118-4 (Version None)
Quarter: 2006Q3

REPORT INFORMATION
  Report Type: 
  Country: None (occurrence: None)
  Receive Date: 20060823
  Receipt Date: 20060823
  Transmission Date: 20061208
  Serious: Yes (Hospitalization)
  Sender: FDA-Public Use
  Company Number: None

PATIENT
  Age: 83 Year
  Sex: Male
  Weight: 75.2971 kg

DRUGS (4)
  1. TAMSULOSIN HCL [Suspect]
     Indication: BENIGN PROSTATIC HYPERPLASIA
     Dosage: 0.4 MG PO QD
     Route: 048
     Dates: start: 20060719, end: 20060729
  2. METOPROLOL TARTRATE [Suspect]
     Dosage: 25 MG PO BID
     Route: 048
  3. FOSINOPRIL SODIUM [Suspect]
     Dosage: 10 MG PO BID
     Route: 048
  4. FUROSEMIDE [Suspect]
     Dosage: 20 MG BID

REACTIONS (5)
  - ANOREXIA [None]
  - ASTHENIA [None]
  - FATIGUE [None]
  - HYPOTENSION [None]
  - NAUSEA [None]
